FAERS Safety Report 4808235-0 (Version None)
Quarter: 2005Q4

REPORT INFORMATION
  Report Type: 
  Country: None (occurrence: None)
  Receive Date: 20051021
  Receipt Date: 20051005
  Transmission Date: 20060501
  Serious: Yes (Disabling)
  Sender: FDA-Public Use
  Company Number: 12659

PATIENT
  Age: 27 Year
  Sex: Male

DRUGS (1)
  1. VINCRISTINE [Suspect]

REACTIONS (3)
  - DRUG ADMINISTRATION ERROR [None]
  - INCORRECT ROUTE OF DRUG ADMINISTRATION [None]
  - QUADRIPLEGIA [None]
